FAERS Safety Report 5678043-X (Version None)
Quarter: 2008Q1

REPORT INFORMATION
  Report Type: 
  Country: None (occurrence: None)
  Receive Date: 20080314
  Receipt Date: 20080305
  Transmission Date: 20080703
  Serious: No
  Sender: FDA-Public Use
  Company Number: AECAN200800051

PATIENT
  Age: 76 Year
  Sex: Female
  Weight: 70 kg

DRUGS (12)
  1. GAMUNEX [Suspect]
     Indication: IDIOPATHIC THROMBOCYTOPENIC PURPURA
     Dosage: IV
     Route: 042
     Dates: start: 20080229, end: 20080229
  2. GAMUNEX [Suspect]
     Indication: IDIOPATHIC THROMBOCYTOPENIC PURPURA
     Dosage: IV
     Route: 042
     Dates: start: 20080229, end: 20080229
  3. PREDNISONE TAB [Concomitant]
  4. SYNTHROID [Concomitant]
  5. SEROQUEL [Concomitant]
  6. STATEX [Concomitant]
  7. TRINIPATCH [Concomitant]
  8. ASPIRIN [Concomitant]
  9. METOPROLOL TARTRATE [Concomitant]
  10. FOLIC ACID [Concomitant]
  11. OXYBUTYNIN CHLORIDE [Concomitant]
  12. PREVACID [Concomitant]

REACTIONS (3)
  - CHROMATURIA [None]
  - HAEMOLYSIS [None]
  - PYREXIA [None]
